FAERS Safety Report 4371047-9 (Version None)
Quarter: 2004Q2

REPORT INFORMATION
  Report Type: 
  Country: None (occurrence: None)
  Receive Date: 20040527
  Receipt Date: 20040520
  Transmission Date: 20050107
  Serious: Yes (Death)
  Sender: FDA-Public Use
  Company Number: 2004-BP-03396RO

PATIENT
  Age: 45 Year
  Sex: Female
  Weight: 100.7 kg

DRUGS (2)
  1. ALPRAZOLAM [Suspect]
     Dates: end: 20030613
  2. METHADONE HCL [Suspect]
     Dates: end: 20030613

REACTIONS (10)
  - BLOOD KETONE BODY PRESENT [None]
  - CARDIOMEGALY [None]
  - DRUG INTERACTION POTENTIATION [None]
  - DRUG TOXICITY [None]
  - HEPATOMEGALY [None]
  - HYPERTENSION [None]
  - LUNG DISORDER [None]
  - NEPHROSCLEROSIS [None]
  - PLEURAL ADHESION [None]
  - PULMONARY OEDEMA [None]
